FAERS Safety Report 23138208 (Version 1)
Quarter: 2023Q4

REPORT INFORMATION
  Report Type: Report from Study
  Country: US (occurrence: US)
  Receive Date: 20231102
  Receipt Date: 20231102
  Transmission Date: 20240110
  Serious: Yes (Hospitalization, Other)
  Sender: FDA-Public Use
  Company Number: US-UCBSA-2023015924

PATIENT
  Age: 5 Year
  Sex: Male

DRUGS (3)
  1. FINTEPLA [Suspect]
     Active Substance: FENFLURAMINE
     Indication: Lennox-Gastaut syndrome
     Dosage: 2.7 MILLILITER, 2X/DAY (BID)
     Dates: start: 20230201
  2. FINTEPLA [Suspect]
     Active Substance: FENFLURAMINE
     Dosage: 2.7 MILLILITER, 2X/DAY (BID)
     Dates: start: 2023
  3. FINTEPLA [Suspect]
     Active Substance: FENFLURAMINE
     Dosage: 2.7 MILLILITER, 2X/DAY (BID)
     Dates: start: 2023

REACTIONS (4)
  - Seizure [Not Recovered/Not Resolved]
  - Viral infection [Not Recovered/Not Resolved]
  - Intentional self-injury [Not Recovered/Not Resolved]
  - Ear infection [Recovered/Resolved]

NARRATIVE: CASE EVENT DATE: 20230222
